FAERS Safety Report 25938010 (Version 1)
Quarter: 2025Q4

REPORT INFORMATION
  Report Type: Spontaneous
  Country: GB (occurrence: GB)
  Receive Date: 20251018
  Receipt Date: 20251018
  Transmission Date: 20260118
  Serious: Yes (Other)
  Sender: USV PRIVATE LIMITED
  Company Number: None

PATIENT
  Age: 60 Year
  Sex: Female
  Weight: 56 kg

DRUGS (2)
  1. OLOPATADINE HYDROCHLORIDE [Suspect]
     Active Substance: OLOPATADINE HYDROCHLORIDE
     Indication: Product used for unknown indication
  2. MOMETASONE FUROATE\OLOPATADINE HYDROCHLORIDE [Suspect]
     Active Substance: MOMETASONE FUROATE\OLOPATADINE HYDROCHLORIDE
     Indication: Adverse drug reaction
     Dosage: 2 SPRAYS IN EACH NOSTRIL, TWICE EACH DAY
     Dates: start: 20250908

REACTIONS (5)
  - Tinnitus [Not Recovered/Not Resolved]
  - Somnolence [Recovering/Resolving]
  - Muscle fatigue [Recovering/Resolving]
  - Sinus headache [Recovering/Resolving]
  - Brain fog [Recovering/Resolving]
